FAERS Safety Report 11046656 (Version 1)
Quarter: 2015Q2

REPORT INFORMATION
  Report Type: Spontaneous
  Country: US (occurrence: None)
  Receive Date: 20150417
  Receipt Date: 20150417
  Transmission Date: 20150821
  Serious: Yes (Hospitalization)
  Sender: FDA-Public Use
  Company Number: None

PATIENT
  Sex: Male

DRUGS (1)
  1. IMBRUVICA [Suspect]
     Active Substance: IBRUTINIB
     Indication: LEUKAEMIA
     Route: 048
     Dates: start: 20141003

REACTIONS (6)
  - Palmar-plantar erythrodysaesthesia syndrome [None]
  - Erythema [None]
  - Blood sodium decreased [None]
  - Dehydration [None]
  - Pain in extremity [None]
  - Skin exfoliation [None]
